FAERS Safety Report 18968957 (Version 1)
Quarter: 2021Q1

REPORT INFORMATION
  Report Type: Spontaneous
  Country: US (occurrence: US)
  Receive Date: 20210304
  Receipt Date: 20210304
  Transmission Date: 20210420
  Serious: No
  Sender: FDA-Public Use
  Company Number: US-VYERA PHARMACEUTICALS, LLC-2020VYE00027

PATIENT
  Sex: Male

DRUGS (2)
  1. DARAPRIM [Suspect]
     Active Substance: PYRIMETHAMINE
  2. LEUCOVORIN. [Suspect]
     Active Substance: LEUCOVORIN
     Dosage: UNK
     Dates: end: 20200427

REACTIONS (4)
  - Pruritus [Recovering/Resolving]
  - Dermatitis [Recovering/Resolving]
  - Dizziness [Recovering/Resolving]
  - Rash papular [Recovering/Resolving]
